FAERS Safety Report 7285937-0 (Version None)
Quarter: 2011Q1

REPORT INFORMATION
  Report Type: 
  Country: None (occurrence: None)
  Receive Date: 20110210
  Receipt Date: 20110131
  Transmission Date: 20110831
  Serious: Yes (Death, Hospitalization)
  Sender: FDA-Public Use
  Company Number: IT-MERCK-1101ITA00059

PATIENT
  Age: 73 Year
  Sex: Female

DRUGS (14)
  1. VERAPAMIL HYDROCHLORIDE [Concomitant]
     Route: 048
  2. FUROSEMIDE [Concomitant]
     Route: 065
  3. OMEPRAZOLE [Concomitant]
     Route: 048
  4. ACENOCOUMAROL [Concomitant]
     Route: 048
  5. METILDIGOXIN [Concomitant]
     Route: 065
  6. PRIMAXIN [Suspect]
     Indication: PRODUCTIVE COUGH
     Route: 041
     Dates: start: 20101030, end: 20101109
  7. LEVOFLOXACIN [Suspect]
     Indication: NEUTROPHILIA
     Route: 041
     Dates: start: 20101023, end: 20101109
  8. METHYLPREDNISOLONE [Concomitant]
     Route: 065
  9. CIPROFLOXACIN HYDROCHLORIDE [Suspect]
     Indication: OROPHARYNGEAL PAIN
     Route: 048
     Dates: start: 20101019, end: 20101021
  10. CEFTAZIDIME [Suspect]
     Indication: PRODUCTIVE COUGH
     Route: 041
     Dates: start: 20101021, end: 20101030
  11. AMOXICILLIN AND CLAVULANATE POTASSIUM [Suspect]
     Indication: OROPHARYNGEAL PAIN
     Route: 048
     Dates: start: 20101011, end: 20101015
  12. NYSTATIN [Concomitant]
     Route: 065
     Dates: start: 20101015, end: 20101112
  13. VALSARTAN [Concomitant]
     Route: 048
  14. ALUMINUM HYDROXIDE AND MAGNESIUM HYDROXIDE [Concomitant]
     Route: 048

REACTIONS (3)
  - DEATH [None]
  - CLOSTRIDIUM TEST POSITIVE [None]
  - DIARRHOEA [None]
